FAERS Safety Report 7879041-8 (Version None)
Quarter: 2011Q4

REPORT INFORMATION
  Report Type: 
  Country: None (occurrence: None)
  Receive Date: 20111101
  Receipt Date: 20111024
  Transmission Date: 20120403
  Serious: Yes (Other)
  Sender: FDA-Public Use
  Company Number: PHHY2011US60507

PATIENT
  Sex: Female

DRUGS (4)
  1. GILENYA [Suspect]
     Indication: RELAPSING-REMITTING MULTIPLE SCLEROSIS
     Dosage: 0.5 MG, QD
     Route: 048
     Dates: start: 20110301
  2. CYMBALTA [Concomitant]
     Indication: NEURALGIA
     Dosage: 60 MG, QD
     Route: 048
  3. ATIVAN [Concomitant]
     Indication: INSOMNIA
     Dosage: 0.5 MG, QD
     Route: 048
  4. ADDERALL XR 10 [Concomitant]
     Indication: FATIGUE
     Dosage: 20 MG, QD
     Route: 048

REACTIONS (3)
  - SPINAL FRACTURE [None]
  - SPONDYLOLISTHESIS [None]
  - BACK PAIN [None]
